FAERS Safety Report 7591640-X (Version None)
Quarter: 2011Q2

REPORT INFORMATION
  Report Type: 
  Country: None (occurrence: None)
  Receive Date: 20110627
  Receipt Date: 20110617
  Transmission Date: 20111010
  Serious: Yes (Death)
  Sender: FDA-Public Use
  Company Number: OMPQ-NO-1106S-0583

PATIENT
  Age: 60 Year
  Sex: Female
  Weight: 58 kg

DRUGS (1)
  1. OMNIPAQUE 70 [Suspect]
     Indication: ABDOMINAL PAIN UPPER
     Dosage: 18 ML, SINGLE DOSE, INTRAVNEOUS
     Route: 042
     Dates: start: 20110604, end: 20110604

REACTIONS (2)
  - NO THERAPEUTIC RESPONSE [None]
  - CONTRAST MEDIA REACTION [None]
